FAERS Safety Report 15458874 (Version 1)
Quarter: 2018Q4

REPORT INFORMATION
  Report Type: Spontaneous
  Country: US (occurrence: US)
  Receive Date: 20181003
  Receipt Date: 20181003
  Transmission Date: 20190204
  Serious: Yes (Other)
  Sender: FDA-Public Use
  Company Number: US-SA-2018SA073849

PATIENT
  Age: 70 Year
  Sex: Female
  Weight: 76.2 kg

DRUGS (12)
  1. HERCEPTIN [Concomitant]
     Active Substance: TRASTUZUMAB
  2. PERJETA [Concomitant]
     Active Substance: PERTUZUMAB
  3. TAXOTERE [Suspect]
     Active Substance: DOCETAXEL
     Indication: BREAST CANCER FEMALE
     Dosage: 60 MG, Q3W
     Route: 042
     Dates: start: 20140708, end: 20140708
  4. PARAPLATIN [Concomitant]
     Active Substance: CARBOPLATIN
  5. NITROSTAT [Concomitant]
     Active Substance: NITROGLYCERIN
  6. LISINOPRIL. [Concomitant]
     Active Substance: LISINOPRIL
  7. CALCIUM [Concomitant]
     Active Substance: CALCIUM
  8. TOPROL XL [Concomitant]
     Active Substance: METOPROLOL SUCCINATE
  9. ATORVASTATIN [Concomitant]
     Active Substance: ATORVASTATIN
  10. ASPIRIN 81 [Concomitant]
     Active Substance: ASPIRIN
  11. TAXOTERE [Suspect]
     Active Substance: DOCETAXEL
     Dosage: 60 MG
     Route: 042
     Dates: start: 20141103, end: 20141103
  12. RANITIDINE. [Concomitant]
     Active Substance: RANITIDINE
     Route: 065

REACTIONS (2)
  - Alopecia [Recovering/Resolving]
  - Psychological trauma [Unknown]

NARRATIVE: CASE EVENT DATE: 201407
